FAERS Safety Report 10695343 (Version 4)
Quarter: 2015Q1

REPORT INFORMATION
  Report Type: Spontaneous
  Country: JP (occurrence: JP)
  Receive Date: 20150107
  Receipt Date: 20150318
  Transmission Date: 20150721
  Serious: Yes (Life-Threatening, Hospitalization, Other)
  Sender: FDA-Public Use
  Company Number: JP-JNJFOC-20141219559

PATIENT
  Age: 67 Year
  Sex: Male
  Weight: 56 kg

DRUGS (5)
  1. SOSEGON (PENTAZOCINE) [Suspect]
     Active Substance: PENTAZOCINE
     Indication: PAIN
     Route: 065
     Dates: start: 20141119, end: 20141119
  2. FENTANYL CITRATE. [Suspect]
     Active Substance: FENTANYL CITRATE
     Indication: ANAESTHESIA PROCEDURE
     Route: 065
     Dates: start: 20141119, end: 20141119
  3. ATARAX-P [Interacting]
     Active Substance: HYDROXYZINE HYDROCHLORIDE
     Indication: IRRITABILITY
     Route: 065
     Dates: start: 20141119, end: 20141120
  4. SERENACE [Interacting]
     Active Substance: HALOPERIDOL
     Indication: IRRITABILITY
     Route: 065
     Dates: start: 20141119, end: 20141120
  5. FENTANYL CITRATE. [Suspect]
     Active Substance: FENTANYL CITRATE
     Indication: LIP AND/OR ORAL CAVITY CANCER
     Route: 065
     Dates: start: 20141119, end: 20141119

REACTIONS (5)
  - Cardio-respiratory arrest [Unknown]
  - Postresuscitation encephalopathy [Unknown]
  - Drug interaction [Unknown]
  - Irritability [Unknown]
  - Pain [Unknown]

NARRATIVE: CASE EVENT DATE: 20141119
